FAERS Safety Report 18112447 (Version 1)
Quarter: 2020Q3

REPORT INFORMATION
  Report Type: Spontaneous
  Country: US (occurrence: US)
  Receive Date: 20200804
  Receipt Date: 20200804
  Transmission Date: 20201103
  Serious: Yes (Hospitalization)
  Sender: FDA-Public Use
  Company Number: None

PATIENT
  Age: 77 Year
  Sex: Male

DRUGS (15)
  1. TADALAFIL 20MG TAB [Suspect]
     Active Substance: TADALAFIL
     Indication: PULMONARY ARTERIAL HYPERTENSION
     Route: 048
     Dates: start: 20180316
  2. BUMETANIDE. [Concomitant]
     Active Substance: BUMETANIDE
  3. FOLIC ACID. [Concomitant]
     Active Substance: FOLIC ACID
  4. FUROSEMIDE. [Concomitant]
     Active Substance: FUROSEMIDE
  5. SUCRALFATE. [Concomitant]
     Active Substance: SUCRALFATE
  6. NAPROXEN. [Concomitant]
     Active Substance: NAPROXEN
  7. PHENAZOPYRID [Concomitant]
  8. ULORIC [Concomitant]
     Active Substance: FEBUXOSTAT
  9. COLCHICINE. [Concomitant]
     Active Substance: COLCHICINE
  10. AMLODIPINE [Concomitant]
     Active Substance: AMLODIPINE BESYLATE
  11. FEROSUL [Concomitant]
     Active Substance: FERROUS SULFATE
  12. METOPROLOL SUCCINATE. [Concomitant]
     Active Substance: METOPROLOL SUCCINATE
  13. TAMSULOSIN [Concomitant]
     Active Substance: TAMSULOSIN
  14. POT CHLORIDE ER [Concomitant]
  15. MIDODRINE [Concomitant]
     Active Substance: MIDODRINE

REACTIONS (2)
  - Hospitalisation [None]
  - Therapy interrupted [None]

NARRATIVE: CASE EVENT DATE: 20200328
